FAERS Safety Report 12459729 (Version 1)
Quarter: 2016Q2

REPORT INFORMATION
  Report Type: Spontaneous
  Country: US (occurrence: US)
  Receive Date: 20160613
  Receipt Date: 20160613
  Transmission Date: 20160815
  Serious: No
  Sender: FDA-Public Use
  Company Number: US-SHIRE-US201606311

PATIENT
  Age: 8 Year
  Sex: Male
  Weight: 28.57 kg

DRUGS (2)
  1. VYVANSE [Suspect]
     Active Substance: LISDEXAMFETAMINE DIMESYLATE
     Indication: ATTENTION DEFICIT/HYPERACTIVITY DISORDER
     Dosage: (MONDAY TO FRIDAY)
     Route: 048
     Dates: start: 201601, end: 2016
  2. VYVANSE [Suspect]
     Active Substance: LISDEXAMFETAMINE DIMESYLATE
     Dosage: UNK, OTHER(OPENED CASULE AND ADMINISTERED HALF, MONDAY TO FRIDAY)
     Route: 048
     Dates: start: 2016

REACTIONS (8)
  - Drug effect increased [Recovered/Resolved]
  - Product quality issue [Unknown]
  - Incorrect dose administered [Not Recovered/Not Resolved]
  - Decreased appetite [Recovering/Resolving]
  - Autophobia [Recovered/Resolved]
  - Crying [Recovered/Resolved]
  - Emotional distress [Recovered/Resolved]
  - Wrong technique in product usage process [Not Recovered/Not Resolved]

NARRATIVE: CASE EVENT DATE: 2016
